FAERS Safety Report 9237871 (Version 1)
Quarter: 2013Q1

REPORT INFORMATION
  Report Type: Spontaneous
  Country: US (occurrence: None)
  Receive Date: 20121031
  Receipt Date: 20121031
  Transmission Date: 20140127
  Serious: No
  Sender: FDA-Public Use
  Company Number: PHEH2012US014065

PATIENT
  Age: 40 Year
  Sex: Male

DRUGS (5)
  1. GILENYA [Suspect]
     Indication: MULTIPLE SCLEROSIS
     Route: 048
     Dates: start: 20120109
  2. LIPITOR ( ATORVASTATIN CALCIUM) [Concomitant]
  3. PROVIGIL ( MODAFINIL) [Concomitant]
  4. BACLOFEN ( BACLOFEN) [Concomitant]
  5. TRAMADOL ( TRAMADOL) [Concomitant]

REACTIONS (2)
  - Hepatic enzyme increased [None]
  - Inappropriate schedule of drug administration [None]
